FAERS Safety Report 13988411 (Version 2)
Quarter: 2017Q3

REPORT INFORMATION
  Report Type: Spontaneous
  Country: US (occurrence: US)
  Receive Date: 20170919
  Receipt Date: 20170920
  Transmission Date: 20171128
  Serious: Yes (Hospitalization, Other)
  Sender: FDA-Public Use
  Company Number: US-PFIZER INC-2017397752

PATIENT
  Age: 51 Year
  Sex: Male

DRUGS (2)
  1. CERITINIB [Concomitant]
     Active Substance: CERITINIB
     Dosage: UNK
  2. GEMCITABINE HYDROCHLORIDE. [Suspect]
     Active Substance: GEMCITABINE HYDROCHLORIDE
     Indication: CHOLANGIOCARCINOMA
     Dosage: WEEKLY INFUSION

REACTIONS (1)
  - Pseudocellulitis [Recovering/Resolving]
